FAERS Safety Report 7784499-9 (Version None)
Quarter: 2011Q3

REPORT INFORMATION
  Report Type: 
  Country: None (occurrence: None)
  Receive Date: 20110901
  Receipt Date: 20100706
  Transmission Date: 20111222
  Serious: Yes (Disabling, Other)
  Sender: FDA-Public Use
  Company Number: 238265USA

PATIENT
  Sex: Female

DRUGS (1)
  1. METOCLOPRAMIDE [Suspect]
     Indication: IMPAIRED GASTRIC EMPTYING
     Dosage: 20 MG (5 MG,1 IN 6 HR) , ORAL
     Route: 048
     Dates: start: 20080301, end: 20080501

REACTIONS (5)
  - TARDIVE DYSKINESIA [None]
  - COGNITIVE DISORDER [None]
  - PARKINSON'S DISEASE [None]
  - DYSKINESIA [None]
  - EXTRAPYRAMIDAL DISORDER [None]
